FAERS Safety Report 23625474 (Version 1)
Quarter: 2024Q1

REPORT INFORMATION
  Report Type: Report from Study
  Country: ES (occurrence: ES)
  Receive Date: 20240313
  Receipt Date: 20240313
  Transmission Date: 20240410
  Serious: Yes (Other)
  Sender: FDA-Public Use
  Company Number: ES-SA-SAC20240227001395

PATIENT
  Sex: Male
  Weight: 60 kg

DRUGS (9)
  1. NUCYNTA [Suspect]
     Active Substance: TAPENTADOL HYDROCHLORIDE
     Indication: Back pain
     Dosage: UNK, UNKNOWN
     Route: 048
  2. INSULIN GLARGINE [Suspect]
     Active Substance: INSULIN GLARGINE
     Indication: Type 2 diabetes mellitus
     Dosage: 8 INTERNATIONAL UNIT, UNKNOWN
     Route: 058
     Dates: start: 202303, end: 2023
  3. INSULIN GLARGINE [Suspect]
     Active Substance: INSULIN GLARGINE
     Dosage: 9 INTERNATIONAL UNIT, 1/DAY
     Route: 058
     Dates: start: 2023, end: 202304
  4. FLUOXETINE HYDROCHLORIDE [Suspect]
     Active Substance: FLUOXETINE HYDROCHLORIDE
     Indication: Back pain
     Dosage: UNK, UNKNOWN
     Route: 048
  5. ACETAMINOPHEN [Concomitant]
     Active Substance: ACETAMINOPHEN
     Indication: Back pain
     Dosage: UNK, UNKNOWN
     Route: 065
  6. ACETAMINOPHEN\TRAMADOL HYDROCHLORIDE [Concomitant]
     Active Substance: ACETAMINOPHEN\TRAMADOL HYDROCHLORIDE
     Indication: Back pain
     Dosage: UNK, UNKNOWN
     Route: 065
  7. FIASP [Concomitant]
     Active Substance: INSULIN ASPART
     Indication: Diabetes mellitus inadequate control
     Dosage: UNK, UNKNOWN
     Route: 058
  8. FIASP [Concomitant]
     Active Substance: INSULIN ASPART
     Indication: Type 2 diabetes mellitus
  9. METFORMIN HYDROCHLORIDE [Concomitant]
     Active Substance: METFORMIN HYDROCHLORIDE
     Indication: Type 2 diabetes mellitus
     Dosage: 0.5 DOSAGE FORM, BID (2/DAY)
     Route: 048

REACTIONS (2)
  - Blood glucose increased [Recovering/Resolving]
  - Diabetes mellitus inadequate control [Recovering/Resolving]
